FAERS Safety Report 5973053-7 (Version None)
Quarter: 2008Q4

REPORT INFORMATION
  Report Type: 
  Country: None (occurrence: None)
  Receive Date: 20081201
  Receipt Date: 20081118
  Transmission Date: 20090506
  Serious: Yes (Other)
  Sender: FDA-Public Use
  Company Number: RS-ROCHE-597995

PATIENT
  Sex: Female

DRUGS (3)
  1. BONIVA [Suspect]
     Indication: OSTEOPOROSIS
     Route: 048
     Dates: start: 20081106
  2. BROMAZEPAM [Concomitant]
     Dosage: DRUG NAME REPORTED AS: ^LEXILIUM^
     Route: 048
  3. INDERAL [Concomitant]
     Route: 048

REACTIONS (2)
  - ANGIOEDEMA [None]
  - CHEST PAIN [None]
